FAERS Safety Report 7015743-3 (Version None)
Quarter: 2010Q3

REPORT INFORMATION
  Report Type: 
  Country: None (occurrence: None)
  Receive Date: 20100927
  Receipt Date: 20100701
  Transmission Date: 20110219
  Serious: No
  Sender: FDA-Public Use
  Company Number: US-ASTRAZENECA-2010SE30797

PATIENT
  Sex: Female

DRUGS (1)
  1. ARIMIDEX [Suspect]
     Indication: BREAST CANCER
     Route: 048
     Dates: start: 20070101

REACTIONS (8)
  - ANXIETY [None]
  - BLOOD TRIGLYCERIDES INCREASED [None]
  - BONE DENSITY DECREASED [None]
  - HYPERTENSION [None]
  - INSOMNIA [None]
  - MICTURITION DISORDER [None]
  - MUSCULOSKELETAL PAIN [None]
  - PHOTOSENSITIVITY REACTION [None]
